FAERS Safety Report 7510798-1 (Version None)
Quarter: 2011Q2

REPORT INFORMATION
  Report Type: 
  Country: None (occurrence: None)
  Receive Date: 20110530
  Receipt Date: 20110518
  Transmission Date: 20111010
  Serious: Yes (Other)
  Sender: FDA-Public Use
  Company Number: US-AMGEN-USASP2011025743

PATIENT
  Age: 87 Year

DRUGS (3)
  1. PROLIA [Suspect]
     Indication: OSTEOPOROSIS POSTMENOPAUSAL
     Dosage: 60 MG, QMO
     Dates: start: 20100901
  2. SYMBICORT [Concomitant]
  3. COMBIVENT [Concomitant]

REACTIONS (10)
  - MUSCLE TIGHTNESS [None]
  - CONSTIPATION [None]
  - MICTURITION URGENCY [None]
  - SCRATCH [None]
  - CHRONIC OBSTRUCTIVE PULMONARY DISEASE [None]
  - MUSCLE SPASMS [None]
  - ARTHRALGIA [None]
  - PRURITUS [None]
  - MIDDLE INSOMNIA [None]
  - MYALGIA [None]
